FAERS Safety Report 4876326-4 (Version None)
Quarter: 2005Q4

REPORT INFORMATION
  Report Type: 
  Country: None (occurrence: None)
  Receive Date: 20051206
  Receipt Date: 20051012
  Transmission Date: 20060501
  Serious: No
  Sender: FDA-Public Use
  Company Number: USA0510110762

PATIENT
  Age: 72 Year
  Sex: Female
  Weight: 61 kg

DRUGS (5)
  1. CYMBALTA [Suspect]
     Indication: DEPRESSION
     Dosage: 30 MG
     Dates: start: 20050901
  2. DYAZIDE [Concomitant]
  3. POTASSIUM [Concomitant]
  4. NEURONTIN [Concomitant]
  5. XANAX [Concomitant]

REACTIONS (6)
  - APATHY [None]
  - CONSTIPATION [None]
  - CRYING [None]
  - DEPRESSION [None]
  - INSOMNIA [None]
  - SOMNOLENCE [None]
